FAERS Safety Report 20134502 (Version 1)
Quarter: 2021Q4

REPORT INFORMATION
  Report Type: Report from Study
  Country: BR (occurrence: BR)
  Receive Date: 20211201
  Receipt Date: 20211201
  Transmission Date: 20220303
  Serious: Yes (Death, Hospitalization)
  Sender: FDA-Public Use
  Company Number: BR-NOVARTISPH-NVSC2021BR271316

PATIENT
  Age: 30 Year
  Sex: Female

DRUGS (3)
  1. EVEROLIMUS [Suspect]
     Active Substance: EVEROLIMUS
     Indication: Product used for unknown indication
     Dosage: UNK
     Route: 065
     Dates: start: 201710, end: 202012
  2. EXEMESTANE [Suspect]
     Active Substance: EXEMESTANE
     Indication: Cancer hormonal therapy
     Dosage: UNK
     Route: 065
     Dates: start: 201707, end: 202012
  3. GOSERELIN [Suspect]
     Active Substance: GOSERELIN
     Indication: Cancer hormonal therapy
     Dosage: UNK
     Route: 065
     Dates: start: 201707, end: 202012

REACTIONS (3)
  - COVID-19 pneumonia [Fatal]
  - Respiratory symptom [Fatal]
  - Mucosal inflammation [Unknown]

NARRATIVE: CASE EVENT DATE: 20201208
